FAERS Safety Report 21206462 (Version 1)
Quarter: 2022Q3

REPORT INFORMATION
  Report Type: Spontaneous
  Country: US (occurrence: None)
  Receive Date: 20220811
  Receipt Date: 20220811
  Transmission Date: 20221026
  Serious: Yes (unspecified)
  Sender: FDA-Public Use
  Company Number: None

PATIENT
  Age: 56 Year
  Sex: Male

DRUGS (1)
  1. TESTOSTERONE CYPIONATE [Suspect]
     Active Substance: TESTOSTERONE CYPIONATE
     Indication: Blood testosterone decreased
     Dosage: 0.625 ML TWICE PER WEEK INTRAMUSCULAR?
     Route: 030

REACTIONS (2)
  - Injection site pain [None]
  - Injection site swelling [None]

NARRATIVE: CASE EVENT DATE: 20220719
